FAERS Safety Report 20033337 (Version 1)
Quarter: 2021Q4

REPORT INFORMATION
  Report Type: Spontaneous
  Country: RU (occurrence: RU)
  Receive Date: 20211104
  Receipt Date: 20211104
  Transmission Date: 20220304
  Serious: Yes (Other)
  Sender: FDA-Public Use
  Company Number: RU-ABBVIE-21K-251-4147384-00

PATIENT

DRUGS (1)
  1. VALPROIC ACID [Suspect]
     Active Substance: VALPROIC ACID
     Indication: Product used for unknown indication
     Route: 065

REACTIONS (6)
  - Anterograde amnesia [Recovering/Resolving]
  - Memory impairment [Recovering/Resolving]
  - Conversion disorder [Recovering/Resolving]
  - Panic attack [Recovering/Resolving]
  - Impaired quality of life [Recovering/Resolving]
  - Alopecia [Recovering/Resolving]
